FAERS Safety Report 4360453-4 (Version None)
Quarter: 2004Q2

REPORT INFORMATION
  Report Type: 
  Country: None (occurrence: None)
  Receive Date: 20040514
  Receipt Date: 20040504
  Transmission Date: 20050107
  Serious: Yes (Hospitalization)
  Sender: FDA-Public Use
  Company Number: 04H-163-0259771-00

PATIENT
  Age: 56 Year
  Sex: Male

DRUGS (3)
  1. LIDOCAINE HYDROCHLORIDE 1% INJ [Suspect]
     Indication: BACK PAIN
     Dosage: NOT REPORTED, ONCE, EPIDURAL
     Route: 008
  2. LIDOCAINE HCL [Suspect]
     Indication: EPIDURAL ANAESTHESIA
     Dosage: 3 ML, ONCE, EPIDURAL
     Route: 008
  3. TRIAMCINOLONE [Suspect]
     Indication: BACK PAIN
     Dosage: 120 MG, ONCE, EPIDURAL
     Route: 008

REACTIONS (9)
  - ASTHENIA [None]
  - DYSARTHRIA [None]
  - HYPOTENSION [None]
  - INFECTION [None]
  - MENINGEAL DISORDER [None]
  - MOTOR DYSFUNCTION [None]
  - MYOCLONUS [None]
  - SEDATION [None]
  - SENSORY LEVEL ABNORMAL [None]
